FAERS Safety Report 5800328-4 (Version None)
Quarter: 2008Q3

REPORT INFORMATION
  Report Type: 
  Country: None (occurrence: None)
  Receive Date: 20080703
  Receipt Date: 20080319
  Transmission Date: 20090109
  Serious: No
  Sender: FDA-Public Use
  Company Number: A0716441A

PATIENT
  Age: 61 Year
  Sex: Female

DRUGS (7)
  1. ADVAIR DISKUS 100/50 [Suspect]
     Indication: ASTHMA
     Dosage: 1PUFF TWICE PER DAY
     Route: 055
     Dates: start: 20070101
  2. ALBUTEROL + IPRATROPIUM BROMIDE [Suspect]
     Dosage: 1NEB THREE TIMES PER DAY
     Route: 055
  3. LIPITOR [Concomitant]
  4. DIAZIDE [Concomitant]
  5. ALLEGRA [Concomitant]
  6. RANITIDINE HCL [Concomitant]
  7. ACIPHEX [Concomitant]

REACTIONS (2)
  - EXTRASYSTOLES [None]
  - FEELING JITTERY [None]
